FAERS Safety Report 10102890 (Version 2)
Quarter: 2014Q2

REPORT INFORMATION
  Report Type: Other
  Country: US (occurrence: US)
  Receive Date: 20140424
  Receipt Date: 20140625
  Transmission Date: 20141212
  Serious: Yes (Death, Other)
  Sender: FDA-Public Use
  Company Number: US-GSKPPD-2014GSK000043

PATIENT
  Age: 74 Year
  Sex: Male

DRUGS (4)
  1. AVANDIA [Suspect]
     Indication: DIABETES MELLITUS
     Route: 048
     Dates: start: 200606, end: 200704
  2. LOTREL [Concomitant]
     Route: 048
     Dates: start: 2005, end: 2007
  3. FUROSEMIDE [Concomitant]
     Dates: start: 2007, end: 2007
  4. GLIPIZIDE [Concomitant]
     Route: 048
     Dates: start: 2005, end: 2007

REACTIONS (1)
  - Myocardial infarction [Fatal]
